FAERS Safety Report 26198312 (Version 1)
Quarter: 2025Q4

REPORT INFORMATION
  Report Type: Spontaneous
  Country: EU (occurrence: EU)
  Receive Date: 20251224
  Receipt Date: 20251224
  Transmission Date: 20260118
  Serious: Yes (Hospitalization)
  Sender: MYLAN
  Company Number: None

PATIENT
  Age: 17 Year
  Sex: Male
  Weight: 55 kg

DRUGS (4)
  1. TRAMADOL [Suspect]
     Active Substance: TRAMADOL
     Indication: Product used for unknown indication
     Dosage: UNK
     Route: 061
     Dates: start: 20250711, end: 20250711
  2. BROMAZEPAM [Suspect]
     Active Substance: BROMAZEPAM
     Indication: Product used for unknown indication
     Dosage: 1 DOSAGE FORM (1 BOX AS A SINGLE DOSE)
     Route: 061
     Dates: start: 20250711, end: 20250711
  3. ACETAMINOPHEN [Suspect]
     Active Substance: ACETAMINOPHEN
     Indication: Product used for unknown indication
     Dosage: UNK
     Route: 061
     Dates: start: 20250711, end: 20250711
  4. METHADONE [Suspect]
     Active Substance: METHADONE HYDROCHLORIDE
     Indication: Product used for unknown indication
     Dosage: 80 MILLIGRAM (2 VIALS OF 40MG)
     Route: 061
     Dates: start: 20250711, end: 20250711

REACTIONS (4)
  - Drug use disorder [Unknown]
  - Hypersomnia [Recovering/Resolving]
  - Cardiac disorder [Recovering/Resolving]
  - Hepatic cytolysis [Recovering/Resolving]

NARRATIVE: CASE EVENT DATE: 20250711
